FAERS Safety Report 6130706-8 (Version None)
Quarter: 2009Q1

REPORT INFORMATION
  Report Type: 
  Country: None (occurrence: None)
  Receive Date: 20090325
  Receipt Date: 20090313
  Transmission Date: 20090719
  Serious: Yes (Hospitalization)
  Sender: FDA-Public Use
  Company Number: PL-JNJFOC-20090303609

PATIENT
  Age: 18 Year
  Sex: Male
  Weight: 51 kg

DRUGS (4)
  1. REMICADE [Suspect]
     Dosage: 2ND DOSE
     Route: 042
  2. REMICADE [Suspect]
     Indication: CROHN'S DISEASE
     Route: 042
  3. SULFASALAZIN [Concomitant]
     Indication: CROHN'S DISEASE
     Route: 048
  4. IMURAN [Concomitant]
     Indication: CROHN'S DISEASE
     Route: 048

REACTIONS (2)
  - DEHYDRATION [None]
  - GASTROENTERITIS [None]
